FAERS Safety Report 22241011 (Version 1)
Quarter: 2023Q2

REPORT INFORMATION
  Report Type: Report from Study
  Country: US (occurrence: None)
  Receive Date: 20230421
  Receipt Date: 20230421
  Transmission Date: 20230722
  Serious: Yes (Life-Threatening, Hospitalization, Other)
  Sender: FDA-Public Use
  Company Number: 2023A089241

PATIENT
  Sex: Male

DRUGS (5)
  1. CALQUENCE [Suspect]
     Active Substance: ACALABRUTINIB
     Indication: Chronic lymphocytic leukaemia
     Route: 048
  2. ALLOPURINOL [Concomitant]
     Active Substance: ALLOPURINOL
  3. SYNTHROID [Concomitant]
     Active Substance: LEVOTHYROXINE SODIUM
  4. DOCUSATE [Concomitant]
     Active Substance: DOCUSATE
     Dosage: TWICE A DAY, BUT HE IS ONLY DOING ONCE A DAY
  5. WARFARIN [Concomitant]
     Active Substance: WARFARIN
     Dosage: 5MG DAILY AND 1MG EVERY OTHER DAY

REACTIONS (15)
  - Hypotension [Unknown]
  - Intestinal pseudo-obstruction [Unknown]
  - Heart rate increased [Unknown]
  - Blood sodium decreased [Unknown]
  - Atrial fibrillation [Unknown]
  - Pneumonia [Unknown]
  - Pleural effusion [Unknown]
  - Memory impairment [Unknown]
  - Staphylococcal sepsis [Unknown]
  - Pneumothorax [Unknown]
  - Rotator cuff syndrome [Unknown]
  - Neoplasm malignant [Unknown]
  - Skin discolouration [Unknown]
  - Candida infection [Unknown]
  - Product dose omission issue [Unknown]
